FAERS Safety Report 4826237-5 (Version None)
Quarter: 2005Q4

REPORT INFORMATION
  Report Type: 
  Country: None (occurrence: None)
  Receive Date: 20051014
  Receipt Date: 20050728
  Transmission Date: 20060501
  Serious: No
  Sender: FDA-Public Use
  Company Number: 2005SP002107

PATIENT
  Age: 45 Year
  Sex: Female
  Weight: 62.5964 kg

DRUGS (3)
  1. LUNESTA [Suspect]
     Indication: INSOMNIA
     Dosage: 1 MG;HS; ORAL; 2 MG;HS;ORAL
     Route: 048
     Dates: start: 20050711, end: 20050714
  2. LUNESTA [Suspect]
     Indication: INSOMNIA
     Dosage: 1 MG;HS; ORAL; 2 MG;HS;ORAL
     Route: 048
     Dates: start: 20050725
  3. EFFEXOR [Concomitant]

REACTIONS (5)
  - CONSTIPATION [None]
  - DRUG INEFFECTIVE [None]
  - HEADACHE [None]
  - MIDDLE INSOMNIA [None]
  - RHINITIS [None]
